FAERS Safety Report 4484470-9 (Version None)
Quarter: 2004Q3

REPORT INFORMATION
  Report Type: 
  Country: None (occurrence: None)
  Receive Date: 20040921
  Receipt Date: 20040114
  Transmission Date: 20050211
  Serious: Yes (Hospitalization)
  Sender: FDA-Public Use
  Company Number: 163-20785-04010363

PATIENT
  Age: 36 Year
  Sex: Male

DRUGS (7)
  1. THALOMID [Suspect]
     Indication: MALIGNANT MELANOMA
     Dosage: 100 MG, DAILY, ORAL
     Route: 048
     Dates: start: 20040107
  2. TEMOZOLOMIDE (TEMOZOLOMIDE) (UNKNOWN) [Suspect]
     Indication: MALIGNANT MELANOMA
     Dosage: 75 MG/M2, DAILY, ORAL
     Route: 048
     Dates: start: 20040107, end: 20040108
  3. TEMOZOLOMIDE (TEMOZOLOMIDE) (UNKNOWN) [Suspect]
     Indication: MALIGNANT MELANOMA
     Dosage: 75 MG/M2, DAILY, ORAL
     Route: 048
     Dates: start: 20040109
  4. WHOLE BRAIN RADIOTHERAPY [Suspect]
     Indication: MALIGNANT MELANOMA
     Dosage: 3000 CGY IN 10 FRACTIONS, DAY
     Dates: start: 20040107
  5. DECADRON [Concomitant]
  6. PEPCID [Concomitant]
  7. COLACE (DOCUSATE SODIUM) [Concomitant]

REACTIONS (7)
  - BLOOD BICARBONATE INCREASED [None]
  - BLOOD GLUCOSE INCREASED [None]
  - HEADACHE [None]
  - NAUSEA [None]
  - PROTHROMBIN TIME PROLONGED [None]
  - VOMITING [None]
  - WHITE BLOOD CELL COUNT INCREASED [None]
